FAERS Safety Report 12410953 (Version 1)
Quarter: 2016Q2

REPORT INFORMATION
  Report Type: Report from Study
  Country: BE (occurrence: BE)
  Receive Date: 20160527
  Receipt Date: 20160527
  Transmission Date: 20160815
  Serious: Yes (Death, Hospitalization)
  Sender: FDA-Public Use
  Company Number: BE-ROCHE-1763334

PATIENT
  Age: 86 Year
  Sex: Male
  Weight: 76 kg

DRUGS (27)
  1. STEOVIT D3 [Concomitant]
     Active Substance: CALCIUM CARBONATE\CHOLECALCIFEROL
     Indication: OSTEOPOROSIS
     Route: 048
     Dates: start: 201401, end: 20160325
  2. PIRFENIDONE [Suspect]
     Active Substance: PIRFENIDONE
     Dosage: 2 CAPSULES IN THE MORNING 2 MIDDAY 2 EVENING
     Route: 065
     Dates: start: 201511, end: 20151117
  3. PIRFENIDONE [Suspect]
     Active Substance: PIRFENIDONE
     Dosage: 2 CAPSULES IN THE MORNING 2 MIDDAY 3 EVENING
     Route: 065
     Dates: end: 20160128
  4. LASIX [Concomitant]
     Active Substance: FUROSEMIDE
     Route: 065
     Dates: start: 201601, end: 20160325
  5. PRAREDUCT [Concomitant]
     Indication: HYPERCHOLESTEROLAEMIA
     Route: 065
     Dates: start: 201401, end: 201601
  6. CLIPPER [Concomitant]
     Active Substance: BECLOMETHASONE DIPROPIONATE
     Indication: ULCER
     Route: 065
     Dates: start: 201601, end: 20160325
  7. OMIC [Concomitant]
     Dosage: PROSTATE
     Route: 065
     Dates: start: 201601, end: 20160325
  8. PIRFENIDONE [Suspect]
     Active Substance: PIRFENIDONE
     Dosage: 1 CAPSULE IN THE MORNING 1 MIDDAY 1 EVENING
     Route: 065
     Dates: start: 20160128, end: 20160325
  9. AGGRENOX [Concomitant]
     Active Substance: ASPIRIN\DIPYRIDAMOLE
     Route: 065
     Dates: start: 201601, end: 20160325
  10. CLAVUCID [Concomitant]
     Indication: ANTIBIOTIC THERAPY
     Route: 065
     Dates: start: 201603, end: 20160325
  11. PIRFENIDONE [Suspect]
     Active Substance: PIRFENIDONE
     Dosage: 2 CAPSULES IN THE MORNING 2 MIDDAY 2 EVENING
     Route: 065
     Dates: start: 20150303, end: 20150310
  12. PIRFENIDONE [Suspect]
     Active Substance: PIRFENIDONE
     Indication: IDIOPATHIC PULMONARY FIBROSIS
     Dosage: 1 CAPSULE IN THE MORNING 1 MIDDAY 1 EVENING
     Route: 065
     Dates: end: 20150303
  13. PIRFENIDONE [Suspect]
     Active Substance: PIRFENIDONE
     Dosage: 2 CAPSULES IN THE MORNING 2 MIDDAY 2 EVENING
     Route: 065
     Dates: start: 20150317, end: 20150331
  14. PIRFENIDONE [Suspect]
     Active Substance: PIRFENIDONE
     Dosage: 1 CAPSULE IN THE MORNING 1 MIDDAY 1 EVENING
     Route: 065
     Dates: start: 20150331, end: 20150407
  15. PENTASA [Concomitant]
     Active Substance: MESALAMINE
     Indication: COLITIS ULCERATIVE
     Route: 065
     Dates: start: 201401, end: 20160325
  16. PIRFENIDONE [Suspect]
     Active Substance: PIRFENIDONE
     Dosage: 1 CAPSULE IN THE MORNING 1 MIDDAY 2 EVENING
     Route: 065
     Dates: start: 20150407, end: 201511
  17. PANTOPRAZOLE [Suspect]
     Active Substance: PANTOPRAZOLE SODIUM
     Route: 065
     Dates: start: 201601, end: 20160128
  18. PANTOPRAZOLE [Suspect]
     Active Substance: PANTOPRAZOLE SODIUM
     Dosage: MOST RECENT DOSE ON 25/MAR/2016
     Route: 065
  19. LASIX [Concomitant]
     Active Substance: FUROSEMIDE
     Indication: CARDIAC FAILURE
     Route: 065
     Dates: start: 201405, end: 201511
  20. PIRFENIDONE [Suspect]
     Active Substance: PIRFENIDONE
     Dosage: 3 CAPSULES IN THE MORNING 3 MIDDAY 3 EVENING
     Route: 065
     Dates: start: 20150311, end: 20150317
  21. ALIZAPRIDE [Suspect]
     Active Substance: ALIZAPRIDE
     Indication: GASTROOESOPHAGEAL REFLUX DISEASE
     Dosage: PRN 3 TIMES PER DAY
     Route: 065
     Dates: start: 20160325
  22. CLIPPER [Concomitant]
     Active Substance: BECLOMETHASONE DIPROPIONATE
     Indication: COLITIS
     Route: 065
     Dates: start: 201403, end: 201601
  23. CONTRAMAL [Concomitant]
     Active Substance: TRAMADOL HYDROCHLORIDE
     Indication: PAIN IN EXTREMITY
     Route: 065
     Dates: start: 201603, end: 20160325
  24. PANTOPRAZOLE [Suspect]
     Active Substance: PANTOPRAZOLE SODIUM
     Indication: GASTROOESOPHAGEAL REFLUX DISEASE
     Route: 065
     Dates: end: 201601
  25. AGGRENOX [Concomitant]
     Active Substance: ASPIRIN\DIPYRIDAMOLE
     Indication: CARDIOVASCULAR EVENT PROPHYLAXIS
     Route: 065
     Dates: end: 201601
  26. LASIX [Concomitant]
     Active Substance: FUROSEMIDE
     Route: 065
     Dates: start: 201511, end: 201601
  27. PRAVASINE [Concomitant]
     Active Substance: PRAVASTATIN SODIUM
     Indication: HYPERCHOLESTEROLAEMIA
     Route: 065
     Dates: start: 201601, end: 20160325

REACTIONS (6)
  - Weight decreased [Recovered/Resolved]
  - Dysstasia [Recovered/Resolved]
  - Vomiting [Recovered/Resolved]
  - Decreased appetite [Recovered/Resolved]
  - Death [Fatal]
  - Gastrooesophageal reflux disease [Recovered/Resolved]

NARRATIVE: CASE EVENT DATE: 20160127
